FAERS Safety Report 11641467 (Version 5)
Quarter: 2016Q1

REPORT INFORMATION
  Report Type: Report from Study
  Country: US (occurrence: US)
  Receive Date: 20151019
  Receipt Date: 20160113
  Transmission Date: 20160525
  Serious: Yes (Hospitalization, Other)
  Sender: FDA-Public Use
  Company Number: US-BAYER-2015-441246

PATIENT
  Age: 60 Year
  Sex: Male

DRUGS (1)
  1. NEXAVAR [Suspect]
     Active Substance: SORAFENIB
     Indication: HEPATOCELLULAR CARCINOMA
     Dosage: 200 MG, BID
     Route: 048
     Dates: start: 20151001, end: 20151210

REACTIONS (18)
  - Pyrexia [Recovering/Resolving]
  - Haemoptysis [None]
  - Internal haemorrhage [None]
  - Haematochezia [None]
  - Haematoma [Not Recovered/Not Resolved]
  - Epistaxis [None]
  - Diarrhoea [Recovering/Resolving]
  - Blood pressure fluctuation [Recovering/Resolving]
  - Anaemia [None]
  - Fatigue [None]
  - Pruritus [Recovering/Resolving]
  - Myalgia [Recovering/Resolving]
  - Hypotension [None]
  - Cough [Recovering/Resolving]
  - Abdominal pain [None]
  - Dry skin [None]
  - Dizziness [None]
  - Asthenia [None]

NARRATIVE: CASE EVENT DATE: 2015
